FAERS Safety Report 6633007-4 (Version None)
Quarter: 2010Q1

REPORT INFORMATION
  Report Type: 
  Country: None (occurrence: None)
  Receive Date: 20100310
  Receipt Date: 20100301
  Transmission Date: 20100710
  Serious: Yes (Other)
  Sender: FDA-Public Use
  Company Number: 522259

PATIENT
  Age: 5 Year
  Sex: Female

DRUGS (3)
  1. VINCRISTINE SULFATE [Suspect]
     Indication: HODGKIN'S DISEASE
  2. (PROCARBAZINE) [Suspect]
     Indication: HODGKIN'S DISEASE
  3. (NITROGEN MUSTARD) [Suspect]
     Indication: HODGKIN'S DISEASE

REACTIONS (7)
  - CHROMOSOMAL DELETION [None]
  - HODGKIN'S DISEASE [None]
  - MALIGNANT NEOPLASM PROGRESSION [None]
  - MYELODYSPLASTIC SYNDROME [None]
  - NO THERAPEUTIC RESPONSE [None]
  - SEPSIS [None]
  - STEM CELL TRANSPLANT [None]
